FAERS Safety Report 5391269-8 (Version None)
Quarter: 2007Q3

REPORT INFORMATION
  Report Type: 
  Country: None (occurrence: None)
  Receive Date: 20070717
  Receipt Date: 20070702
  Transmission Date: 20080115
  Serious: Yes (Other)
  Sender: FDA-Public Use
  Company Number: 015989

PATIENT
  Age: 17 Year
  Sex: Female

DRUGS (1)
  1. EXTENDED PHENYTOIN SODIUM [Suspect]
     Indication: CONVULSION

REACTIONS (6)
  - ABORTION SPONTANEOUS [None]
  - CHORIOAMNIONITIS [None]
  - DRUG EXPOSURE DURING PREGNANCY [None]
  - SEPSIS [None]
  - SKIN OEDEMA [None]
  - TOXIC EPIDERMAL NECROLYSIS [None]
